FAERS Safety Report 9499412 (Version 1)
Quarter: 2013Q1

REPORT INFORMATION
  Report Type: Spontaneous
  Country: US (occurrence: None)
  Receive Date: 20130107
  Receipt Date: 20130107
  Transmission Date: 20140127
  Serious: Yes (Hospitalization)
  Sender: FDA-Public Use
  Company Number: PHEH2012US019460

PATIENT
  Sex: Female

DRUGS (1)
  1. GILENYA (FTY) [Suspect]
     Route: 048
     Dates: start: 20110209

REACTIONS (3)
  - Kidney infection [None]
  - Pyrexia [None]
  - Blood pressure increased [None]
